FAERS Safety Report 6453700-6 (Version None)
Quarter: 2009Q4

REPORT INFORMATION
  Report Type: 
  Country: None (occurrence: None)
  Receive Date: 20091124
  Receipt Date: 20091119
  Transmission Date: 20100525
  Serious: No
  Sender: FDA-Public Use
  Company Number: US-B.I. PHARMACEUTICALS,INC./RIDGEFIELD-2009-BP-13531BP

PATIENT
  Sex: Female

DRUGS (5)
  1. SPIRIVA [Suspect]
     Indication: CHRONIC OBSTRUCTIVE PULMONARY DISEASE
     Dosage: 18 MCG
     Route: 055
     Dates: start: 20050101
  2. COUMADIN [Concomitant]
     Indication: THROMBOSIS
  3. TOPROL-XL [Concomitant]
     Indication: HYPERTENSION
  4. NEXIUM [Concomitant]
     Indication: GASTROOESOPHAGEAL REFLUX DISEASE
  5. VITAMIN [Concomitant]
     Indication: PROPHYLAXIS

REACTIONS (1)
  - MACULAR DEGENERATION [None]
